FAERS Safety Report 19358540 (Version 1)
Quarter: 2021Q2

REPORT INFORMATION
  Report Type: Spontaneous
  Country: US (occurrence: US)
  Receive Date: 20210601
  Receipt Date: 20210601
  Transmission Date: 20210717
  Serious: Yes (Hospitalization, Other)
  Sender: FDA-Public Use
  Company Number: US-BAXTER-2021BAX012870

PATIENT
  Age: 31 Year
  Sex: Male

DRUGS (17)
  1. DAUNORUBICIN [Suspect]
     Active Substance: DAUNORUBICIN
     Indication: ACUTE MYELOMONOCYTIC LEUKAEMIA
     Dosage: TWO COURSES
     Route: 065
  2. POTASSIUM [Concomitant]
     Active Substance: POTASSIUM
     Indication: HYPOKALAEMIA
     Dosage: ON DAY 14
     Route: 042
  3. AMPICILLIN [Suspect]
     Active Substance: AMPICILLIN
     Indication: ANTIBIOTIC THERAPY
     Route: 065
  4. TOBRAMYCIN. [Suspect]
     Active Substance: TOBRAMYCIN
     Indication: ANTIBIOTIC THERAPY
     Dosage: GIVEN FROM DAY 24 TO 34
     Route: 065
  5. AMPHOTERICIN B. [Concomitant]
     Active Substance: AMPHOTERICIN B
     Indication: MUCORMYCOSIS
     Dosage: GIVEN FROM DAY 30 TO THE TIME OF PATIENTS DEATH
     Route: 065
  6. POTASSIUM [Concomitant]
     Active Substance: POTASSIUM
     Dosage: 400 MEQ
     Route: 048
  7. CALCIUM CARBONATE. [Concomitant]
     Active Substance: CALCIUM CARBONATE
     Indication: HYPOCALCAEMIA
     Dosage: 18 TABLETS
     Route: 048
  8. GENTAMICIN SULFATE IN 0.9% SODIUM CHLORIDE INJECTION [Suspect]
     Active Substance: GENTAMICIN SULFATE
     Indication: ANTIBIOTIC THERAPY
     Dosage: CONTINUED UNTIL DAY 71
     Route: 065
  9. CEFOXITIN [Suspect]
     Active Substance: CEFOXITIN SODIUM
     Indication: ANTIBIOTIC THERAPY
     Route: 065
  10. OXACILLIN [Suspect]
     Active Substance: OXACILLIN SODIUM
     Indication: ANTIBIOTIC THERAPY
     Route: 065
  11. CALCIUM CARBONATE. [Concomitant]
     Active Substance: CALCIUM CARBONATE
     Indication: PRODUCT USED FOR UNKNOWN INDICATION
     Dosage: 18 TABLETS
     Route: 065
  12. CYTARABINE. [Suspect]
     Active Substance: CYTARABINE
     Indication: ACUTE MYELOMONOCYTIC LEUKAEMIA
     Dosage: TWO COURSES
     Route: 065
  13. MAGNESIUM SULFATE. [Concomitant]
     Active Substance: MAGNESIUM SULFATE
     Indication: HYPOMAGNESAEMIA
     Dosage: EVERY OTHER DAY
     Route: 065
  14. PENICILLIN G [Suspect]
     Active Substance: PENICILLIN G
     Indication: ANTIBIOTIC THERAPY
     Route: 065
  15. CALCIUM GLUCONATE. [Concomitant]
     Active Substance: CALCIUM GLUCONATE
     Indication: HYPOCALCAEMIA
     Dosage: STARTING ON DAY 40
     Route: 042
  16. POTASSIUM CHLORIDE. [Concomitant]
     Active Substance: POTASSIUM CHLORIDE
     Indication: HYPOKALAEMIA
     Route: 048
  17. VINCRISTINE [Suspect]
     Active Substance: VINCRISTINE
     Indication: ACUTE MYELOMONOCYTIC LEUKAEMIA
     Dosage: TWO COURSES
     Route: 065

REACTIONS (2)
  - Renal impairment [Unknown]
  - Renal tubular disorder [Unknown]
